FAERS Safety Report 16489277 (Version 1)
Quarter: 2019Q2

REPORT INFORMATION
  Report Type: Spontaneous
  Country: US (occurrence: US)
  Receive Date: 20190628
  Receipt Date: 20190628
  Transmission Date: 20190711
  Serious: No
  Sender: FDA-Public Use
  Company Number: US-ACCORD-101047

PATIENT
  Age: 38 Year
  Sex: Male
  Weight: 74.84 kg

DRUGS (1)
  1. CLONAZEPAM ACCORD [Suspect]
     Active Substance: CLONAZEPAM
     Indication: ANXIETY
     Route: 048
     Dates: start: 2018, end: 2018

REACTIONS (4)
  - Candida infection [Not Recovered/Not Resolved]
  - Drug ineffective [Unknown]
  - Agitation [Not Recovered/Not Resolved]
  - Withdrawal syndrome [Not Recovered/Not Resolved]
